FAERS Safety Report 6668123-4 (Version None)
Quarter: 2010Q2

REPORT INFORMATION
  Report Type: 
  Country: None (occurrence: None)
  Receive Date: 20100406
  Receipt Date: 20100309
  Transmission Date: 20101027
  Serious: No
  Sender: FDA-Public Use
  Company Number: US-BIOGENIDEC-2010BI008265

PATIENT
  Age: 62 Year
  Sex: Female

DRUGS (1)
  1. TYSABRI [Suspect]
     Indication: MULTIPLE SCLEROSIS
     Route: 042
     Dates: start: 20090519

REACTIONS (5)
  - BRONCHITIS [None]
  - CATARACT [None]
  - FATIGUE [None]
  - INFECTION SUSCEPTIBILITY INCREASED [None]
  - UVEITIS [None]
